FAERS Safety Report 5624740-1 (Version None)
Quarter: 2008Q1

REPORT INFORMATION
  Report Type: 
  Country: None (occurrence: None)
  Receive Date: 20080201
  Receipt Date: 20080117
  Transmission Date: 20080703
  Serious: Yes (Hospitalization)
  Sender: FDA-Public Use
  Company Number: OMRIX_10005

PATIENT
  Age: 13 Year
  Sex: Male

DRUGS (1)
  1. EVICEL [Suspect]
     Indication: SCOLIOSIS
     Dates: start: 20080108

REACTIONS (4)
  - DURAL TEAR [None]
  - FLUID RETENTION [None]
  - POST PROCEDURAL COMPLICATION [None]
  - WOUND SECRETION [None]
